FAERS Safety Report 20379207 (Version 1)
Quarter: 2022Q1

REPORT INFORMATION
  Report Type: Spontaneous
  Country: DE (occurrence: DE)
  Receive Date: 20220126
  Receipt Date: 20220126
  Transmission Date: 20220424
  Serious: Yes (Hospitalization)
  Sender: FDA-Public Use
  Company Number: DE-NOVARTISPH-NVSC2022DE014270

PATIENT
  Age: 68 Year
  Sex: Male

DRUGS (6)
  1. OXCARBAZEPINE [Suspect]
     Active Substance: OXCARBAZEPINE
     Indication: Wrong patient received product
     Dosage: 1.5 DOSAGE FORM, QD
     Route: 048
     Dates: start: 20220108, end: 20220108
  2. FEXOFENADINE [Suspect]
     Active Substance: FEXOFENADINE HYDROCHLORIDE
     Indication: Wrong patient received product
     Dosage: 120 MG, QD
     Route: 048
     Dates: start: 20220108, end: 20220108
  3. PRIMIDONE [Suspect]
     Active Substance: PRIMIDONE
     Indication: Wrong patient received product
     Dosage: 250 MG, QD
     Route: 048
     Dates: start: 20220108, end: 20220108
  4. INOVELON [Suspect]
     Active Substance: RUFINAMIDE
     Indication: Wrong patient received product
     Dosage: 400 MG, QD
     Route: 048
     Dates: start: 20220108, end: 20220108
  5. LAMOTRIGINE [Concomitant]
     Active Substance: LAMOTRIGINE
     Indication: Product used for unknown indication
     Dosage: 100 MG (FREQUENCY UNKNOWN)
     Route: 065
  6. LEVETIRACETAM [Concomitant]
     Active Substance: LEVETIRACETAM
     Indication: Product used for unknown indication
     Dosage: 100 MG (FREQUENCY UNKNOWN)
     Route: 065

REACTIONS (2)
  - Wrong patient received product [Recovered/Resolved]
  - Disturbance in attention [Recovered/Resolved]

NARRATIVE: CASE EVENT DATE: 20220108
